FAERS Safety Report 5927367-7 (Version None)
Quarter: 2008Q4

REPORT INFORMATION
  Report Type: 
  Country: None (occurrence: None)
  Receive Date: 20081020
  Receipt Date: 20081007
  Transmission Date: 20090506
  Serious: Yes (Hospitalization, Other)
  Sender: FDA-Public Use
  Company Number: 232908K07USA

PATIENT
  Age: 30 Year
  Sex: Female

DRUGS (2)
  1. REBIF [Suspect]
     Indication: MULTIPLE SCLEROSIS
     Dosage: 44 MCG, 3 IN 1 WEEKS, SUBCUTANEOUS
     Route: 058
     Dates: start: 20050513, end: 20070408
  2. OXYROTYNIN (OXYBUTYNIN /00538901/) [Concomitant]

REACTIONS (8)
  - CYSTITIS [None]
  - DRUG EXPOSURE DURING PREGNANCY [None]
  - GESTATIONAL DIABETES [None]
  - INDUCED LABOUR [None]
  - KIDNEY INFECTION [None]
  - NAUSEA [None]
  - PREGNANCY [None]
  - VOMITING IN PREGNANCY [None]
